FAERS Safety Report 11741701 (Version 8)
Quarter: 2020Q3

REPORT INFORMATION
  Report Type: Report from Study
  Country: FR (occurrence: FR)
  Receive Date: 20151116
  Receipt Date: 20160923
  Transmission Date: 20201104
  Serious: Yes (Hospitalization)
  Sender: FDA-Public Use
  Company Number: FR-ROCHE-1659699

PATIENT
  Age: 77 Year
  Sex: Male
  Weight: 54 kg

DRUGS (24)
  1. SOTALEX [Concomitant]
     Active Substance: SOTALOL
     Indication: VENTRICULAR EXTRASYSTOLES
  2. UROMITEXAN [Concomitant]
     Active Substance: MESNA
     Dosage: CYCLOPHOSPHAMIDE SIDE EFFECT PREVENTION
     Route: 042
     Dates: start: 20151026, end: 20151026
  3. POLATUZUMAB VEDOTIN. [Suspect]
     Active Substance: POLATUZUMAB VEDOTIN
     Indication: B-CELL LYMPHOMA
     Dosage: MOST RECENT DOSE OF POLATUZUMAB VEDOTIN, 75.6 MG, WAS ADMINISTERED ON 26/OCT/2015, PRIOR TO THE EVEN
     Route: 042
     Dates: start: 20150701
  4. ZELITREX [Concomitant]
     Active Substance: VALACYCLOVIR HYDROCHLORIDE
     Indication: INFECTION PROPHYLAXIS
     Route: 048
  5. ZOPHREN [Concomitant]
     Active Substance: ONDANSETRON
     Indication: NAUSEA
     Route: 042
     Dates: start: 20151026, end: 20151026
  6. RITUXIMAB. [Suspect]
     Active Substance: RITUXIMAB
     Indication: B-CELL LYMPHOMA
     Dosage: MOST RECENT DOSE OF RITUXIMAB, 607.5 MG, WAS ADMINISTERED ON 14/OCT/2015, PRIOR TO THE EVENT
     Route: 042
     Dates: start: 20150630
  7. BACTRIM [Concomitant]
     Active Substance: SULFAMETHOXAZOLE\TRIMETHOPRIM
     Indication: INFECTION PROPHYLAXIS
     Route: 048
     Dates: end: 20151123
  8. KARDEGIC [Concomitant]
     Active Substance: ASPIRIN DL-LYSINE
     Indication: AORTIC STENOSIS
     Route: 048
  9. FUNGIZONE [Concomitant]
     Active Substance: AMPHOTERICIN B
     Dosage: CANDIDOSE INFECTION
     Route: 048
     Dates: start: 20151109
  10. ZOPHREN [Concomitant]
     Active Substance: ONDANSETRON
     Indication: VOMITING
  11. ZARZIO [Concomitant]
     Active Substance: FILGRASTIM
     Indication: PROPHYLAXIS
     Route: 058
     Dates: start: 20151031, end: 20151104
  12. CYCLOPHOSPHAMIDE. [Suspect]
     Active Substance: CYCLOPHOSPHAMIDE
     Indication: B-CELL LYMPHOMA
     Dosage: MOST RECENT DOSE OF CYCLOPHOSPHAMIDE, 1215 MG, WAS ADMINISTERED ON 26/OCT/2015, PRIOR TO THE EVENT.
     Route: 042
     Dates: start: 20150630
  13. LEDERFOLINE [Concomitant]
     Active Substance: LEUCOVORIN CALCIUM
     Indication: INFECTION PROPHYLAXIS
     Route: 048
  14. FUNGIZONE [Concomitant]
     Active Substance: AMPHOTERICIN B
     Indication: ORAL FUNGAL INFECTION
     Route: 048
     Dates: start: 20150930, end: 20151009
  15. SOTALEX [Concomitant]
     Active Substance: SOTALOL
     Indication: AORTIC STENOSIS
     Route: 048
  16. UROMITEXAN [Concomitant]
     Active Substance: MESNA
     Dosage: CYCLOPHOSPHAMIDE SIDE EFFECT PREVENTION
     Route: 048
     Dates: start: 20151026, end: 20151026
  17. DOXORUBICIN [Suspect]
     Active Substance: DOXORUBICIN
     Indication: B-CELL LYMPHOMA
     Dosage: MOST RECENT DOSE OF DOXORUBICIN, 81 MG, WAS ADMINISTERED ON 26/OCT/2015, PRIOR TO THE EVENT
     Route: 042
     Dates: start: 20150630
  18. PRAVASTATINE [Concomitant]
     Active Substance: PRAVASTATIN
     Indication: HYPERCHOLESTEROLAEMIA
     Route: 048
  19. TEMESTA (FRANCE) [Concomitant]
     Active Substance: LORAZEPAM
     Indication: ANXIETY
     Route: 048
     Dates: start: 20150627
  20. PRIMPERAN [Concomitant]
     Active Substance: METOCLOPRAMIDE HYDROCHLORIDE
     Indication: NAUSEA
     Route: 042
     Dates: start: 20151026, end: 20151026
  21. PRIMPERAN [Concomitant]
     Active Substance: METOCLOPRAMIDE HYDROCHLORIDE
     Indication: VOMITING
  22. PREDNISONE. [Suspect]
     Active Substance: PREDNISONE
     Indication: B-CELL LYMPHOMA
     Dosage: MOST RECENT DOSE PRIOR TO THE EVENT 100 MG WAS ADMINISTERED ON 18/OCT/2015, PRIOR TO THE EVENT.
     Route: 048
     Dates: start: 20150625
  23. LEVOTHYROX [Concomitant]
     Active Substance: LEVOTHYROXINE
     Indication: THYROIDECTOMY
     Route: 048
  24. TIORFAN [Concomitant]
     Active Substance: RACECADOTRIL
     Indication: DIARRHOEA
     Route: 048
     Dates: start: 20151107, end: 20151108

REACTIONS (1)
  - Malnutrition [Recovered/Resolved]

NARRATIVE: CASE EVENT DATE: 20151108
